FAERS Safety Report 13175852 (Version 2)
Quarter: 2017Q1

REPORT INFORMATION
  Report Type: Spontaneous
  Country: US (occurrence: US)
  Receive Date: 20170201
  Receipt Date: 20170214
  Transmission Date: 20170428
  Serious: Yes (Other)
  Sender: FDA-Public Use
  Company Number: US-JNJFOC-20170122428

PATIENT
  Age: 62 Year
  Sex: Female
  Weight: 113.85 kg

DRUGS (12)
  1. VITAMIN D [Concomitant]
     Active Substance: CHOLECALCIFEROL
     Route: 048
  2. PRADAXA [Concomitant]
     Active Substance: DABIGATRAN ETEXILATE MESYLATE
     Route: 065
  3. EDOXABAN [Concomitant]
     Active Substance: EDOXABAN TOSYLATE
     Route: 065
  4. VITAMIN C [Concomitant]
     Active Substance: ASCORBIC ACID
     Route: 048
  5. XARELTO [Suspect]
     Active Substance: RIVAROXABAN
     Indication: DEEP VEIN THROMBOSIS
     Route: 048
     Dates: start: 20160822
  6. ELIQUIS [Concomitant]
     Active Substance: APIXABAN
     Route: 065
  7. WARFARIN [Concomitant]
     Active Substance: WARFARIN
     Route: 065
  8. VITAMIN B12 [Concomitant]
     Active Substance: CYANOCOBALAMIN
     Route: 048
  9. ASA [Concomitant]
     Active Substance: ASPIRIN
     Route: 065
  10. PLAVIX [Concomitant]
     Active Substance: CLOPIDOGREL BISULFATE
     Route: 065
  11. EFFIENT [Concomitant]
     Active Substance: PRASUGREL HYDROCHLORIDE
     Route: 065
  12. BRILINTA [Concomitant]
     Active Substance: TICAGRELOR
     Route: 065

REACTIONS (2)
  - Inferior vena caval occlusion [Unknown]
  - Weight increased [Unknown]

NARRATIVE: CASE EVENT DATE: 20160901
